FAERS Safety Report 6257375-0 (Version None)
Quarter: 2009Q3

REPORT INFORMATION
  Report Type: 
  Country: None (occurrence: None)
  Receive Date: 20090706
  Receipt Date: 20090702
  Transmission Date: 20100115
  Serious: Yes (Death, Hospitalization)
  Sender: FDA-Public Use
  Company Number: PHHY2009MX26228

PATIENT
  Sex: Male

DRUGS (1)
  1. DIOVAN HCT [Suspect]
     Indication: HYPERTENSION
     Dosage: 1 TABLET/DAY
     Route: 048
     Dates: start: 20081201

REACTIONS (4)
  - CARDIO-RESPIRATORY ARREST [None]
  - CEREBROVASCULAR ACCIDENT [None]
  - HYPERTENSIVE CRISIS [None]
  - THROMBOSIS [None]
